FAERS Safety Report 10408463 (Version 1)
Quarter: 2014Q3

REPORT INFORMATION
  Report Type: Spontaneous
  Country: GB (occurrence: None)
  Receive Date: 20140821
  Receipt Date: 20140821
  Transmission Date: 20150326
  Serious: Yes (Hospitalization)
  Sender: FDA-Public Use
  Company Number: AUR-APL-2014-08645

PATIENT
  Age: 55 Year
  Sex: Female
  Weight: 55 kg

DRUGS (3)
  1. INSULIN GLARGINE (INSULIN GLARGINE) [Concomitant]
     Active Substance: INSULIN GLARGINE
  2. RANITIDINE [Suspect]
     Active Substance: RANITIDINE\RANITIDINE HYDROCHLORIDE
     Indication: DYSPEPSIA
     Dosage: 1 DF, TWO TIMES A DAY, ORAL
     Route: 048
     Dates: start: 20140430, end: 20140614
  3. RANITIDINE [Suspect]
     Active Substance: RANITIDINE\RANITIDINE HYDROCHLORIDE
     Indication: HIATUS HERNIA
     Dosage: 1 DF, TWO TIMES A DAY, ORAL
     Route: 048
     Dates: start: 20140430, end: 20140614

REACTIONS (3)
  - Fall [None]
  - Gait disturbance [None]
  - Sensory disturbance [None]

NARRATIVE: CASE EVENT DATE: 20140717
